FAERS Safety Report 6084468-3 (Version None)
Quarter: 2009Q1

REPORT INFORMATION
  Report Type: 
  Country: None (occurrence: None)
  Receive Date: 20090217
  Receipt Date: 20090205
  Transmission Date: 20090719
  Serious: Yes (Hospitalization)
  Sender: FDA-Public Use
  Company Number: GXKR2009CH01703

PATIENT
  Age: 88 Year
  Sex: Female
  Weight: 60 kg

DRUGS (5)
  1. BILOL                 ( BISOPROLOL) [Suspect]
     Indication: ESSENTIAL HYPERTENSION
     Dosage: 5MG, QD, ORAL
     Route: 048
  2. INDAPAMIDE [Suspect]
     Indication: RENAL FAILURE CHRONIC
     Dosage: 1.5 MG, QD, ORAL
     Route: 048
     Dates: end: 20081110
  3. DEANXIT (FLUPENTIXOL, MELITRACEN) [Suspect]
     Indication: DEPRESSION
     Dosage: 10.5 MG, QD, ORAL
     Route: 048
  4. OMEPRAZOLE [Concomitant]
  5. OLFEN (DICLOFENAC SODIUM) [Concomitant]

REACTIONS (10)
  - ATRIOVENTRICULAR BLOCK [None]
  - COLD SWEAT [None]
  - DAYDREAMING [None]
  - DRUG INTERACTION [None]
  - FEELING HOT [None]
  - GAIT DISTURBANCE [None]
  - HYPOKINESIA [None]
  - MUSCULAR WEAKNESS [None]
  - PALLOR [None]
  - PRESYNCOPE [None]
